FAERS Safety Report 21713788 (Version 2)
Quarter: 2022Q4

REPORT INFORMATION
  Report Type: Spontaneous
  Country: HR (occurrence: HR)
  Receive Date: 20221212
  Receipt Date: 20221213
  Transmission Date: 20230113
  Serious: Yes (Other)
  Sender: FDA-Public Use
  Company Number: HR-009507513-2212HRV003534

PATIENT
  Age: 62 Year
  Sex: Female

DRUGS (6)
  1. KEYTRUDA [Suspect]
     Active Substance: PEMBROLIZUMAB
     Indication: Lung adenocarcinoma
     Dosage: UNK
     Dates: start: 20190424, end: 20190424
  2. KEYTRUDA [Suspect]
     Active Substance: PEMBROLIZUMAB
     Dosage: UNK
     Dates: start: 20190515, end: 20190515
  3. KEYTRUDA [Suspect]
     Active Substance: PEMBROLIZUMAB
     Dosage: UNK
     Dates: start: 20190605, end: 20190605
  4. KEYTRUDA [Suspect]
     Active Substance: PEMBROLIZUMAB
     Dosage: UNK
     Dates: start: 20220602, end: 20220602
  5. INFLIXIMAB [Suspect]
     Active Substance: INFLIXIMAB
     Indication: Lung adenocarcinoma
     Dosage: 5 MG/KG (300 MG)
     Dates: start: 20191031, end: 20191031
  6. INFLIXIMAB [Suspect]
     Active Substance: INFLIXIMAB
     Dosage: UNK
     Dates: start: 20191121, end: 20191121

REACTIONS (10)
  - COVID-19 pneumonia [Unknown]
  - Respiratory failure [Unknown]
  - Malignant neoplasm progression [Unknown]
  - Gastroenteritis [Unknown]
  - Bone pain [Unknown]
  - Positron emission tomogram abnormal [Unknown]
  - Fracture [Unknown]
  - Therapy partial responder [Unknown]
  - Asthenia [Unknown]
  - Malaise [Unknown]

NARRATIVE: CASE EVENT DATE: 20190101
